FAERS Safety Report 16050468 (Version 1)
Quarter: 2019Q1

REPORT INFORMATION
  Report Type: Spontaneous
  Country: ES (occurrence: ES)
  Receive Date: 20190308
  Receipt Date: 20190308
  Transmission Date: 20190418
  Serious: Yes (Other)
  Sender: FDA-Public Use
  Company Number: ES-DENTSPLY-2019SCDP000121

PATIENT
  Age: 32 Year
  Sex: Male

DRUGS (1)
  1. MEPIVACAINE HCL AND EPINEPHRINE [Suspect]
     Active Substance: EPINEPHRINE\MEPIVACAINE HYDROCHLORIDE
     Indication: INFILTRATION ANAESTHESIA
     Dosage: 20 MG/ML + 0,01 MG/ML, SOLUTION FOR INJECTION
     Route: 031

REACTIONS (8)
  - Retinal toxicity [Recovered/Resolved]
  - Conjunctival haemorrhage [None]
  - Sudden visual loss [Recovered/Resolved]
  - Visual field defect [Recovered/Resolved]
  - Open globe injury [Recovered/Resolved]
  - Retinogram abnormal [None]
  - Intraocular pressure increased [Recovered/Resolved]
  - Mydriasis [Recovered/Resolved]
